FAERS Safety Report 12542237 (Version 1)
Quarter: 2016Q3

REPORT INFORMATION
  Report Type: Spontaneous
  Country: US (occurrence: US)
  Receive Date: 20160708
  Receipt Date: 20160708
  Transmission Date: 20161109
  Serious: Yes (Hospitalization, Other)
  Sender: FDA-Public Use
  Company Number: US-B.I. PHARMACEUTICALS,INC./RIDGEFIELD-2016-BI-44823BI

PATIENT
  Age: 83 Year
  Sex: Male

DRUGS (1)
  1. PRADAXA [Suspect]
     Active Substance: DABIGATRAN ETEXILATE MESYLATE
     Indication: CEREBROVASCULAR ACCIDENT PROPHYLAXIS
     Dosage: 300 MG
     Route: 065

REACTIONS (7)
  - Respiratory failure [Unknown]
  - Pneumonia [Unknown]
  - Sepsis [Unknown]
  - Upper gastrointestinal haemorrhage [Unknown]
  - General physical health deterioration [Unknown]
  - Toxicity to various agents [Unknown]
  - Urinary tract infection [Unknown]
